FAERS Safety Report 4737006-9 (Version None)
Quarter: 2005Q3

REPORT INFORMATION
  Report Type: 
  Country: None (occurrence: None)
  Receive Date: 20050802
  Receipt Date: 20050722
  Transmission Date: 20060218
  Serious: Yes (Hospitalization, Other)
  Sender: FDA-Public Use
  Company Number: KII-2005-0017720

PATIENT
  Age: 50 Year
  Sex: Female

DRUGS (4)
  1. MORPHINE SULFATE [Suspect]
     Indication: PAIN
     Dosage: 20 MG/ML, ORAL
     Route: 048
  2. TRAZODONE (TRAZODONE) [Suspect]
  3. ANTIDEPRESSANTS () [Suspect]
  4. VENLAFAXINE HCL [Suspect]

REACTIONS (12)
  - ALANINE AMINOTRANSFERASE INCREASED [None]
  - ASPARTATE AMINOTRANSFERASE INCREASED [None]
  - BACK PAIN [None]
  - BLOOD CREATINE PHOSPHOKINASE INCREASED [None]
  - CARDIAC ENZYMES INCREASED [None]
  - COMA [None]
  - CONFUSIONAL STATE [None]
  - LETHARGY [None]
  - MIOSIS [None]
  - RESPIRATORY ACIDOSIS [None]
  - RESPIRATORY DEPRESSION [None]
  - WHITE BLOOD CELL COUNT INCREASED [None]
